FAERS Safety Report 10140867 (Version 3)
Quarter: 2014Q3

REPORT INFORMATION
  Report Type: Report from Study
  Country: US (occurrence: US)
  Receive Date: 20140429
  Receipt Date: 20140716
  Transmission Date: 20150326
  Serious: Yes (Other)
  Sender: FDA-Public Use
  Company Number: PHEH2014US008445

PATIENT
  Sex: Male

DRUGS (1)
  1. AFINITOR [Suspect]
     Active Substance: EVEROLIMUS
     Indication: MALIGNANT NEOPLASM OF RENAL PELVIS
     Dosage: 7.5 MG, QD
     Route: 048

REACTIONS (4)
  - Malignant neoplasm progression [Not Recovered/Not Resolved]
  - Skin cancer [Unknown]
  - Drug ineffective [Unknown]
  - Second primary malignancy [Unknown]
